FAERS Safety Report 15765546 (Version 1)
Quarter: 2018Q4

REPORT INFORMATION
  Report Type: Spontaneous
  Country: US (occurrence: US)
  Receive Date: 20181227
  Receipt Date: 20181227
  Transmission Date: 20190205
  Serious: No
  Sender: FDA-Public Use
  Company Number: None

PATIENT

DRUGS (1)
  1. LORATADINE 10MG; NDC ON LABEL: 59779-526-38; BATCH NO. 291435 [Suspect]
     Active Substance: LORATADINE
     Dosage: ?          QUANTITY:365 TABLET(S);?

REACTIONS (1)
  - Product commingling [None]

NARRATIVE: CASE EVENT DATE: 20181226
